FAERS Safety Report 19691343 (Version 1)
Quarter: 2021Q3

REPORT INFORMATION
  Report Type: Report from Study
  Country: US (occurrence: US)
  Receive Date: 20210812
  Receipt Date: 20210812
  Transmission Date: 20211014
  Serious: Yes (Other)
  Sender: FDA-Public Use
  Company Number: US-TAKEDA-2021TUS028638

PATIENT
  Age: 30 Year
  Sex: Female

DRUGS (1)
  1. RECOMBINATE [Suspect]
     Active Substance: ANTIHEMOPHILIC FACTOR, HUMAN RECOMBINANT
     Indication: PRODUCT USED FOR UNKNOWN INDICATION
     Dosage: 2600 INTERNATIONAL UNIT
     Route: 042

REACTIONS (7)
  - Limb injury [Recovered/Resolved]
  - COVID-19 immunisation [Recovered/Resolved]
  - Haemorrhage [Not Recovered/Not Resolved]
  - Off label use [Unknown]
  - Vaccination site swelling [Recovered/Resolved]
  - Wound [Recovered/Resolved]
  - Fall [Recovered/Resolved]

NARRATIVE: CASE EVENT DATE: 20210420
